FAERS Safety Report 13845953 (Version 1)
Quarter: 2017Q3

REPORT INFORMATION
  Report Type: Spontaneous
  Country: US (occurrence: US)
  Receive Date: 20170808
  Receipt Date: 20170808
  Transmission Date: 20171127
  Serious: No
  Sender: FDA-Public Use
  Company Number: US-ROCHE-728236

PATIENT
  Age: 80 Year
  Sex: Female
  Weight: 49.9 kg

DRUGS (3)
  1. RED YEAST [Concomitant]
     Active Substance: YEAST
     Dosage: RED YEAST EXTRACT
     Route: 065
  2. BONIVA [Suspect]
     Active Substance: IBANDRONATE SODIUM
     Indication: OSTEOPOROSIS
     Dosage: DISCOTINUED FOR 2 MONTHS
     Route: 048
  3. BONIVA [Suspect]
     Active Substance: IBANDRONATE SODIUM
     Dosage: RESTARTED
     Route: 048

REACTIONS (2)
  - Flushing [Unknown]
  - Presyncope [Unknown]
